FAERS Safety Report 16736839 (Version 2)
Quarter: 2019Q3

REPORT INFORMATION
  Report Type: Spontaneous
  Country: US (occurrence: US)
  Receive Date: 20190823
  Receipt Date: 20190826
  Transmission Date: 20191005
  Serious: No
  Sender: FDA-Public Use
  Company Number: US-TEVA-2019-US-1093933

PATIENT

DRUGS (1)
  1. ACTAVIS METOPROLOL SUCCINATE EXTENDED RELEASE [Suspect]
     Active Substance: METOPROLOL SUCCINATE
     Route: 065

REACTIONS (2)
  - Drug intolerance [Unknown]
  - Product contamination physical [Unknown]
